FAERS Safety Report 15196907 (Version 2)
Quarter: 2018Q3

REPORT INFORMATION
  Report Type: Report from Study
  Country: CA (occurrence: CA)
  Receive Date: 20180725
  Receipt Date: 20180831
  Transmission Date: 20181010
  Serious: Yes (Hospitalization)
  Sender: FDA-Public Use
  Company Number: CA-HLSUS-2018-CA-001099

PATIENT
  Age: 70 Year
  Sex: Male
  Weight: 64 kg

DRUGS (5)
  1. OXAZEPAM. [Concomitant]
     Active Substance: OXAZEPAM
     Dosage: 30MG HS
     Route: 048
     Dates: start: 2012
  2. OLANZAPINE. [Concomitant]
     Active Substance: OLANZAPINE
     Dosage: 12.5MG HS
     Route: 048
     Dates: start: 2012
  3. CLOZARIL [Suspect]
     Active Substance: CLOZAPINE
     Indication: SCHIZOPHRENIA
     Dosage: 150MG 8AM, 100MG 12PM, 150MG 5PM AND 200MG HS
     Route: 048
     Dates: start: 20121122, end: 20180212
  4. HALDOL [Concomitant]
     Active Substance: HALOPERIDOL
     Dosage: 5MG AM
     Route: 048
     Dates: start: 2012
  5. LITHIUM. [Concomitant]
     Active Substance: LITHIUM
     Dosage: 600MG HS
     Route: 048
     Dates: start: 2012

REACTIONS (2)
  - Toxicity to various agents [Unknown]
  - Encephalopathy [Recovered/Resolved]

NARRATIVE: CASE EVENT DATE: 201802
